FAERS Safety Report 7339266-7 (Version None)
Quarter: 2011Q1

REPORT INFORMATION
  Report Type: 
  Country: None (occurrence: None)
  Receive Date: 20110308
  Receipt Date: 20110303
  Transmission Date: 20110831
  Serious: Yes (Hospitalization, Other)
  Sender: FDA-Public Use
  Company Number: US-PFIZER INC-2010062994

PATIENT
  Sex: Female
  Weight: 85.714 kg

DRUGS (14)
  1. CALCIUM WITH VITAMIN D [Concomitant]
     Dosage: UNK
  2. PROTONIX [Concomitant]
     Dosage: UNK
  3. LYRICA [Suspect]
     Dosage: 25 MG, 3X/DAY
     Route: 048
     Dates: start: 20080201
  4. ATENOLOL [Concomitant]
     Indication: HYPERTENSION
     Dosage: UNK
  5. ZINC [Concomitant]
     Dosage: UNK
  6. ASCORBIC ACID [Concomitant]
     Dosage: UNK
  7. VITAMIN D [Concomitant]
     Dosage: UNK
  8. FLEXERIL [Concomitant]
     Dosage: UNK
  9. GLUCOSAMINE [Concomitant]
     Dosage: UNK
  10. DETROL LA [Suspect]
     Dosage: UNK
  11. CELEBREX [Suspect]
     Indication: ARTHRITIS
     Dosage: 200 MG, 1X/DAY
     Dates: end: 20110201
  12. CELEBREX [Suspect]
     Indication: BACK PAIN
     Dosage: 200 MG, 2X/DAY
     Dates: end: 20110201
  13. ACETYLSALICYLIC ACID [Suspect]
     Indication: ANTICOAGULANT THERAPY
     Dosage: 81 MG, 1X/DAY
     Dates: start: 20010101, end: 20110228
  14. VITAMIN E [Concomitant]
     Dosage: UNK

REACTIONS (7)
  - CHEST PAIN [None]
  - NAUSEA [None]
  - GASTROINTESTINAL ULCER HAEMORRHAGE [None]
  - WEIGHT DECREASED [None]
  - ROTATOR CUFF SYNDROME [None]
  - DYSPEPSIA [None]
  - DIARRHOEA [None]
